FAERS Safety Report 15672539 (Version 1)
Quarter: 2018Q4

REPORT INFORMATION
  Report Type: Report from Study
  Country: US (occurrence: US)
  Receive Date: 20181129
  Receipt Date: 20181129
  Transmission Date: 20190205
  Serious: No
  Sender: FDA-Public Use
  Company Number: US-TESARO, INC.-2018-TSO0824-US

PATIENT
  Sex: Female

DRUGS (3)
  1. ZEJULA [Suspect]
     Active Substance: NIRAPARIB
     Dosage: 1 CAPSULE (100 MG)
     Route: 048
     Dates: start: 201802
  2. ZEJULA [Suspect]
     Active Substance: NIRAPARIB
     Indication: MALIGNANT PERITONEAL NEOPLASM
     Dosage: 200 MG,QD
     Route: 048
     Dates: start: 201809
  3. ZEJULA [Suspect]
     Active Substance: NIRAPARIB
     Dosage: 2 CAPSULES (200 MG)
     Route: 048
     Dates: start: 2017

REACTIONS (2)
  - Underdose [Unknown]
  - Asthenia [Unknown]
